FAERS Safety Report 10052165 (Version 1)
Quarter: 2014Q2

REPORT INFORMATION
  Report Type: Spontaneous
  Country: US (occurrence: None)
  Receive Date: 20140401
  Receipt Date: 20140401
  Transmission Date: 20141212
  Serious: Yes (Hospitalization, Other)
  Sender: FDA-Public Use
  Company Number: None

PATIENT
  Age: 47 Year
  Sex: Male
  Weight: 90.2 kg

DRUGS (3)
  1. POMALYST [Suspect]
  2. CRESTOR [Concomitant]
  3. GENGRAF [Concomitant]

REACTIONS (8)
  - Hyperbilirubinaemia [None]
  - Nausea [None]
  - Vomiting [None]
  - Dyspnoea [None]
  - Condition aggravated [None]
  - Decreased appetite [None]
  - Abdominal pain [None]
  - Abdominal discomfort [None]
